FAERS Safety Report 24416497 (Version 1)
Quarter: 2024Q4

REPORT INFORMATION
  Report Type: Spontaneous
  Country: US (occurrence: US)
  Receive Date: 20241009
  Receipt Date: 20241009
  Transmission Date: 20250115
  Serious: No
  Sender: CB FLEET
  Company Number: US-C. B. Fleet Co., Inc.-202309-US-002771

PATIENT
  Sex: Female

DRUGS (1)
  1. MONISTAT 1 COMBINATION PACK [Suspect]
     Active Substance: MICONAZOLE NITRATE
     Indication: Fungal infection
     Dosage: ONCE

REACTIONS (3)
  - Vulvovaginal injury [Recovered/Resolved]
  - Vaginal haemorrhage [Recovered/Resolved]
  - Product use complaint [Unknown]
